FAERS Safety Report 4633400-5 (Version None)
Quarter: 2005Q2

REPORT INFORMATION
  Report Type: 
  Country: None (occurrence: None)
  Receive Date: 20050412
  Receipt Date: 20050404
  Transmission Date: 20051028
  Serious: No
  Sender: FDA-Public Use
  Company Number: 2005-127054-NL

PATIENT
  Age: 71 Year
  Sex: Male

DRUGS (10)
  1. VECURONIUM BROMIDE [Suspect]
     Indication: ANAESTHESIA
     Dosage: 8 MG ONCE/2 MG ONCE/2 MG ONCE/2 MG ONCE/2 MG ONCE INTRAVENOUS BOLUS
     Route: 040
     Dates: start: 20050328, end: 20050328
  2. VECURONIUM BROMIDE [Suspect]
     Indication: ANAESTHESIA
     Dosage: 8 MG ONCE/2 MG ONCE/2 MG ONCE/2 MG ONCE/2 MG ONCE INTRAVENOUS BOLUS
     Route: 040
     Dates: start: 20050328, end: 20050328
  3. VECURONIUM BROMIDE [Suspect]
     Indication: ANAESTHESIA
     Dosage: 8 MG ONCE/2 MG ONCE/2 MG ONCE/2 MG ONCE/2 MG ONCE INTRAVENOUS BOLUS
     Route: 040
     Dates: start: 20050328, end: 20050328
  4. VECURONIUM BROMIDE [Suspect]
     Indication: ANAESTHESIA
     Dosage: 8 MG ONCE/2 MG ONCE/2 MG ONCE/2 MG ONCE/2 MG ONCE INTRAVENOUS BOLUS
     Route: 040
     Dates: start: 20050328, end: 20050328
  5. VECURONIUM BROMIDE [Suspect]
     Indication: ANAESTHESIA
     Dosage: 8 MG ONCE/2 MG ONCE/2 MG ONCE/2 MG ONCE/2 MG ONCE INTRAVENOUS BOLUS
     Route: 040
     Dates: start: 20050328, end: 20050328
  6. FENTANYL CITRATE [Concomitant]
  7. PROPOFOL [Concomitant]
  8. FUROSEMIDE [Concomitant]
  9. POTASSIUM CHLORIDE [Concomitant]
  10. FAMOTIDINE [Concomitant]

REACTIONS (5)
  - ANAESTHETIC COMPLICATION NEUROLOGICAL [None]
  - DELAYED RECOVERY FROM ANAESTHESIA [None]
  - HEPATIC FAILURE [None]
  - HYPONATRAEMIA [None]
  - RESPIRATORY DEPRESSION [None]
